FAERS Safety Report 5688865-7 (Version None)
Quarter: 2008Q1

REPORT INFORMATION
  Report Type: 
  Country: None (occurrence: None)
  Receive Date: 20080331
  Receipt Date: 20080320
  Transmission Date: 20080703
  Serious: Yes (Death, Other)
  Sender: FDA-Public Use
  Company Number: HQWYE070829JAN03

PATIENT
  Sex: Female

DRUGS (3)
  1. PREMPRO [Suspect]
     Dosage: 0.625MG/UNSPECIFIED
     Route: 048
     Dates: start: 20000301, end: 20011201
  2. SYNTHETIC CONJUGATED ESTROGENS A [Suspect]
  3. PROGESTERONE [Suspect]

REACTIONS (1)
  - BREAST CANCER METASTATIC [None]
